FAERS Safety Report 18266385 (Version 1)
Quarter: 2020Q3

REPORT INFORMATION
  Report Type: Spontaneous
  Country: US (occurrence: US)
  Receive Date: 20200915
  Receipt Date: 20200915
  Transmission Date: 20201103
  Serious: No
  Sender: FDA-Public Use
  Company Number: US-AUROBINDO-AUR-APL-2020-005528

PATIENT
  Age: 73 Year
  Sex: Female

DRUGS (1)
  1. PAROXETINE. [Suspect]
     Active Substance: PAROXETINE
     Indication: PRODUCT USED FOR UNKNOWN INDICATION
     Dosage: 20 MILLIGRAM, TWO TIMES A DAY (IN THE AM + PM)
     Route: 065

REACTIONS (4)
  - Drug ineffective [Unknown]
  - Paraesthesia [Unknown]
  - Anxiety [Unknown]
  - Disturbance in attention [Unknown]
